FAERS Safety Report 4942270-7 (Version None)
Quarter: 2006Q1

REPORT INFORMATION
  Report Type: 
  Country: None (occurrence: None)
  Receive Date: 20060313
  Receipt Date: 20051020
  Transmission Date: 20060701
  Serious: No
  Sender: FDA-Public Use
  Company Number: US-GLAXOSMITHKLINE-A0578953A

PATIENT
  Age: 73 Year
  Sex: Male

DRUGS (2)
  1. NICORETTE [Suspect]
  2. COMMIT [Suspect]
     Dates: start: 20051019, end: 20051019

REACTIONS (2)
  - CHEST DISCOMFORT [None]
  - DRUG ABUSER [None]
